FAERS Safety Report 9117967 (Version 2)
Quarter: 2013Q3

REPORT INFORMATION
  Report Type: Spontaneous
  Country: DK (occurrence: DK)
  Receive Date: 20130225
  Receipt Date: 20130801
  Transmission Date: 20140515
  Serious: Yes (Congenital Anomaly)
  Sender: FDA-Public Use
  Company Number: PHHY2013DK016644

PATIENT
  Sex: 0

DRUGS (4)
  1. MIRTAZAPIN HEXAL [Suspect]
     Dosage: (MATERNAL DOSE: 3.75 MG, QD)
     Route: 064
     Dates: end: 20121008
  2. SERTRALIN BLUEFISH [Suspect]
     Dosage: (MATERNAL DOSE: 50 MG QD)
     Route: 064
  3. MIFEGYNE [Suspect]
     Dosage: (METERNAL DOSE: 200 MG)
     Route: 064
     Dates: start: 20120914, end: 20120914
  4. CYTOTEC [Suspect]
     Dosage: (MATERNAL DOSE: 0.2 MG, TID)
     Route: 064
     Dates: start: 20120915, end: 20120915

REACTIONS (6)
  - Talipes [Not Recovered/Not Resolved]
  - Cerebral ventricle dilatation [Not Recovered/Not Resolved]
  - Congenital hand malformation [Not Recovered/Not Resolved]
  - Deformity thorax [Not Recovered/Not Resolved]
  - Congenital jaw malformation [Not Recovered/Not Resolved]
  - Foetal exposure during pregnancy [Recovered/Resolved]
